FAERS Safety Report 22352796 (Version 1)
Quarter: 2023Q2

REPORT INFORMATION
  Report Type: Spontaneous
  Country: GB (occurrence: GB)
  Receive Date: 20230523
  Receipt Date: 20230523
  Transmission Date: 20230721
  Serious: Yes (Hospitalization)
  Sender: FDA-Public Use
  Company Number: None

PATIENT
  Age: 80 Year
  Sex: Female
  Weight: 104 kg

DRUGS (22)
  1. PREGABALIN [Suspect]
     Active Substance: PREGABALIN
     Indication: Product used for unknown indication
     Dosage: 150 MILLIGRAM, QD THIS.... CAPSULE
     Route: 065
     Dates: start: 20230330, end: 20230413
  2. Acidex advance heartburn and indigestion relief [Concomitant]
     Indication: Ill-defined disorder
     Dosage: UNK, QID (TAKE 5ML TO 10ML FOUR TIMES A DAY AFTER MEALS A... )
     Route: 065
     Dates: start: 20220526
  3. Adcal [Concomitant]
     Indication: Product used for unknown indication
     Dosage: 2 DOSAGE FORM, QD (1 DAY)
     Route: 065
     Dates: start: 20200828, end: 20230403
  4. ATORVASTATIN [Concomitant]
     Active Substance: ATORVASTATIN
     Indication: Product used for unknown indication
     Dosage: 1 DOSAGE FORM, HS
     Route: 065
     Dates: start: 20200828
  5. BRIVARACETAM [Concomitant]
     Active Substance: BRIVARACETAM
     Indication: Product used for unknown indication
     Dosage: 2 DOSAGE FORM, QD (1 DAY)
     Route: 065
     Dates: start: 20230123
  6. MIDAZOLAM HYDROCHLORIDE [Concomitant]
     Active Substance: MIDAZOLAM HYDROCHLORIDE
     Indication: Product used for unknown indication
     Dosage: UNK, (FOLLOW THE INSTRUCTIONS IN THE CARE PLAN (THIS ...)
     Route: 065
     Dates: start: 20211214
  7. MELATONIN [Concomitant]
     Active Substance: MELATONIN
     Indication: Product used for unknown indication
     Dosage: 1 DOSAGE FORM, QD (1 DAY) (EARLY EVENING AS PER DR (REDACTED))
     Route: 065
     Dates: start: 20230406
  8. CLOBAZAM [Concomitant]
     Active Substance: CLOBAZAM
     Indication: Product used for unknown indication
     Dosage: UNK, 1 DOSAGE FORM, 1 TABLET IN ANTICIPATION OF A SEIZURE - NO MORE...
     Route: 065
     Dates: start: 20200828
  9. CODEINE PHOSPHATE [Concomitant]
     Active Substance: CODEINE PHOSPHATE
     Indication: Pain
     Dosage: 30 MILLIGRAM, QID
     Route: 065
     Dates: start: 20210831
  10. DOXYCYCLINE [Concomitant]
     Active Substance: DOXYCYCLINE
     Indication: Product used for unknown indication
     Dosage: UNK, TWO NOW THEN ONE DAILY AT LUNCHTIME
     Route: 065
     Dates: start: 20230316, end: 20230323
  11. CALCIUM CARBONATE\CHOLECALCIFEROL [Concomitant]
     Active Substance: CALCIUM CARBONATE\CHOLECALCIFEROL
     Indication: Product used for unknown indication
     Dosage: 2 DOSAGE FORM, QD, (SUCK OR CHEW.. TO HELP PRE... )
     Route: 065
     Dates: start: 20230406, end: 20230406
  12. FOLIC ACID [Concomitant]
     Active Substance: FOLIC ACID
     Indication: Product used for unknown indication
     Dosage: 1 DOSAGE FORM, QD, (8 AM)
     Route: 065
     Dates: start: 20200828
  13. HYDROCORTISONE [Concomitant]
     Active Substance: HYDROCORTISONE
     Indication: Product used for unknown indication
     Dosage: 2 DOSAGE FORM, QD (APPLY TO ITCHY, FLAKY SKIN TO BACK HEAD / NAPE OF NECK ...FOR 7 DAYS)
     Route: 065
     Dates: start: 20230214, end: 20230221
  14. IBUPROFEN [Concomitant]
     Active Substance: IBUPROFEN
     Indication: Product used for unknown indication
     Dosage: UNK, (APPLY TO AFFECTED AREA(S) AND LIGHTLY RUB IN UN...)
     Route: 065
     Dates: start: 20221220
  15. LANSOPRAZOLE [Concomitant]
     Active Substance: LANSOPRAZOLE
     Indication: Product used for unknown indication
     Dosage: 1 DOSAGE FORM, QD
     Route: 065
     Dates: start: 20200828
  16. POLYETHYLENE GLYCOL 3350\POTASSIUM CHLORIDE\SODIUM BICARBONATE\SODIUM [Concomitant]
     Active Substance: POLYETHYLENE GLYCOL 3350\POTASSIUM CHLORIDE\SODIUM BICARBONATE\SODIUM CHLORIDE
     Indication: Constipation
     Dosage: UNK, USE AS ADVISED TO TREAT/PREVENT CONSTIPATION
     Route: 065
     Dates: start: 20210831
  17. LORAZEPAM [Concomitant]
     Active Substance: LORAZEPAM
     Indication: Product used for unknown indication
     Dosage: 0.5 DOSAGE FORM, TAKE HALF OF ONE TABLET ONLY IF NEEDED , UP ..
     Route: 065
     Dates: start: 20221206
  18. MIRTAZAPINE [Concomitant]
     Active Substance: MIRTAZAPINE
     Indication: Depressed mood
     Dosage: 1 DOSAGE FORM, HS (AT NIGHT TO HELP PREVENT LOW MOOD)
     Route: 065
     Dates: start: 20230406
  19. NEFOPAM [Concomitant]
     Active Substance: NEFOPAM
     Indication: Product used for unknown indication
     Dosage: 1 DOSAGE FORM, UP TO THREE TIMES PER DAY, AS ...
     Route: 065
     Dates: start: 20210901
  20. ACETAMINOPHEN [Concomitant]
     Active Substance: ACETAMINOPHEN
     Indication: Product used for unknown indication
     Dosage: UNK, IF WEIGHT GREATER THAN 50KG. TAKE TWO TABLETS F...
     Route: 065
     Dates: start: 20200828
  21. PHENYTOIN SODIUM [Concomitant]
     Active Substance: PHENYTOIN SODIUM
     Indication: Product used for unknown indication
     Dosage: 4 DOSAGE FORM, BID (AT 9AM AND 9PM )
     Route: 065
     Dates: start: 20200828
  22. WARFARIN SODIUM [Concomitant]
     Active Substance: WARFARIN SODIUM
     Indication: Product used for unknown indication
     Dosage: UNK, TAKE AT THE SAME TIME EACH EVENING ACCORDING TO...
     Route: 065
     Dates: start: 20200828

REACTIONS (3)
  - Drug intolerance [Unknown]
  - Somnolence [Unknown]
  - Sedation complication [Recovering/Resolving]
